FAERS Safety Report 5296578-9 (Version None)
Quarter: 2007Q2

REPORT INFORMATION
  Report Type: 
  Country: None (occurrence: None)
  Receive Date: 20070413
  Receipt Date: 20070405
  Transmission Date: 20071010
  Serious: Yes (Other)
  Sender: FDA-Public Use
  Company Number: CA-BOEHRINGER INGELHEIM GMBH, GERMANY-2007-CN-00276CN

PATIENT
  Sex: Female
  Weight: 83.9 kg

DRUGS (4)
  1. MICARDIS [Suspect]
  2. FLOVENT [Concomitant]
     Indication: ASTHMA
     Route: 055
  3. VENTOLIN [Concomitant]
     Indication: ASTHMA
     Route: 055
  4. FLONASE [Concomitant]
     Indication: SEASONAL ALLERGY

REACTIONS (2)
  - CHOKING SENSATION [None]
  - DYSPNOEA [None]
